FAERS Safety Report 19598067 (Version 1)
Quarter: 2021Q3

REPORT INFORMATION
  Report Type: Spontaneous
  Country: BR (occurrence: BR)
  Receive Date: 20210722
  Receipt Date: 20210722
  Transmission Date: 20211014
  Serious: Yes (Hospitalization, Other)
  Sender: FDA-Public Use
  Company Number: BR-SA-2021SA240095

PATIENT
  Sex: Male

DRUGS (1)
  1. OMNIC OCA [Suspect]
     Active Substance: TAMSULOSIN HYDROCHLORIDE
     Indication: PRODUCT USED FOR UNKNOWN INDICATION
     Dosage: UNK, UNKNOWN FREQ.

REACTIONS (2)
  - Prostatomegaly [Unknown]
  - Neoplasm malignant [Unknown]
